FAERS Safety Report 22169597 (Version 1)
Quarter: 2023Q2

REPORT INFORMATION
  Report Type: Spontaneous
  Country: US (occurrence: US)
  Receive Date: 20230404
  Receipt Date: 20230404
  Transmission Date: 20230721
  Serious: No
  Sender: FDA-Public Use
  Company Number: US-APOTEX-2023AP005598

PATIENT
  Sex: Male

DRUGS (1)
  1. BRIMONIDINE TARTRATE [Suspect]
     Active Substance: BRIMONIDINE TARTRATE
     Indication: Optic nerve compression
     Dosage: 2 GTT DROPS, QD
     Route: 047
     Dates: start: 2022

REACTIONS (7)
  - Ocular discomfort [Not Recovered/Not Resolved]
  - Product substitution issue [Unknown]
  - Product closure removal difficult [Unknown]
  - Recalled product administered [Unknown]
  - Vision blurred [Not Recovered/Not Resolved]
  - Eye irritation [Not Recovered/Not Resolved]
  - Eye pain [Not Recovered/Not Resolved]
